FAERS Safety Report 12552673 (Version 1)
Quarter: 2016Q3

REPORT INFORMATION
  Report Type: Spontaneous
  Country: IN (occurrence: IN)
  Receive Date: 20160713
  Receipt Date: 20160713
  Transmission Date: 20161109
  Serious: Yes (Death)
  Sender: FDA-Public Use
  Company Number: IN-PFIZER INC-2016330149

PATIENT

DRUGS (1)
  1. SUTENT [Suspect]
     Active Substance: SUNITINIB MALATE
     Indication: NEOPLASM MALIGNANT
     Dosage: UNK

REACTIONS (6)
  - Pericardial effusion [Fatal]
  - Pleural effusion [Fatal]
  - Cardiac failure [Fatal]
  - Neoplasm malignant [Fatal]
  - Respiratory failure [Fatal]
  - Disease progression [Fatal]
